FAERS Safety Report 4674152-2 (Version None)
Quarter: 2005Q2

REPORT INFORMATION
  Report Type: 
  Country: None (occurrence: None)
  Receive Date: 20050524
  Receipt Date: 20050524
  Transmission Date: 20051028
  Serious: No
  Sender: FDA-Public Use
  Company Number: None

PATIENT
  Sex: Female
  Weight: 59.5 kg

DRUGS (2)
  1. ADRIAMYCIN PFS [Suspect]
     Dosage: 45MG/M2 IV ON DAYS 1 AND 2
     Route: 042
     Dates: start: 19950110
  2. CYTOXAN [Suspect]
     Dosage: 600MG/M2 IV ON DAY 1 EVERY 3 WEEKS TIMES 4
     Route: 042
     Dates: start: 19950110

REACTIONS (1)
  - DEATH [None]
